FAERS Safety Report 7603024-6 (Version None)
Quarter: 2011Q3

REPORT INFORMATION
  Report Type: 
  Country: None (occurrence: None)
  Receive Date: 20110711
  Receipt Date: 20110711
  Transmission Date: 20111222
  Serious: Yes (Hospitalization)
  Sender: FDA-Public Use
  Company Number: None

PATIENT
  Age: 67 Year
  Sex: Male
  Weight: 99.7913 kg

DRUGS (3)
  1. PRILOSEC [Suspect]
     Indication: BARRETT'S OESOPHAGUS
     Dosage: 20MG TWICE DAILY PO
     Route: 048
     Dates: start: 20100722, end: 20101207
  2. PRILOSEC [Suspect]
     Indication: GASTROOESOPHAGEAL REFLUX DISEASE
     Dosage: 20MG TWICE DAILY PO
     Route: 048
     Dates: start: 20100722, end: 20101207
  3. NEXIUM [Suspect]

REACTIONS (5)
  - GASTROOESOPHAGEAL REFLUX DISEASE [None]
  - ABDOMINAL PAIN [None]
  - BARRETT'S OESOPHAGUS [None]
  - CHEST PAIN [None]
  - DISEASE RECURRENCE [None]
